FAERS Safety Report 4983014-2 (Version None)
Quarter: 2006Q2

REPORT INFORMATION
  Report Type: 
  Country: None (occurrence: None)
  Receive Date: 20060426
  Receipt Date: 20060420
  Transmission Date: 20061013
  Serious: Yes (Other)
  Sender: FDA-Public Use
  Company Number: 2006UW07060

PATIENT
  Age: 80 Year
  Sex: Female

DRUGS (4)
  1. ARIMIDEX [Suspect]
     Indication: BREAST CANCER
     Route: 048
     Dates: start: 20050101
  2. FOSAMAX [Concomitant]
  3. ASPIRIN [Concomitant]
  4. VITAMIN B COMPLEX CAP [Concomitant]

REACTIONS (4)
  - ASTHENOPIA [None]
  - FOREIGN BODY SENSATION IN EYES [None]
  - GLAUCOMA [None]
  - PHOTOPSIA [None]
